FAERS Safety Report 5905325-6 (Version None)
Quarter: 2008Q4

REPORT INFORMATION
  Report Type: 
  Country: None (occurrence: None)
  Receive Date: 20081001
  Receipt Date: 20080919
  Transmission Date: 20090506
  Serious: Yes (Other)
  Sender: FDA-Public Use
  Company Number: GB-PFIZER INC-2008063797

PATIENT
  Age: 60 Year
  Sex: Female

DRUGS (1)
  1. VIBRAMYCIN [Suspect]
     Indication: MALARIA PROPHYLAXIS
     Route: 048
     Dates: start: 20080715, end: 20080717

REACTIONS (4)
  - DYSPEPSIA [None]
  - DYSPHAGIA [None]
  - OROPHARYNGEAL PAIN [None]
  - SENSATION OF FOREIGN BODY [None]
